FAERS Safety Report 20495838 (Version 2)
Quarter: 2022Q2

REPORT INFORMATION
  Report Type: Report from Study
  Country: KW (occurrence: KW)
  Receive Date: 20220221
  Receipt Date: 20220408
  Transmission Date: 20220721
  Serious: Yes (Disabling, Other)
  Sender: FDA-Public Use
  Company Number: KW-NOVARTISPH-NVSC2022KW037132

PATIENT
  Sex: Male

DRUGS (1)
  1. ELTROMBOPAG OLAMINE [Suspect]
     Active Substance: ELTROMBOPAG OLAMINE
     Indication: Immune thrombocytopenia
     Dosage: 50 MG, QD
     Route: 048
     Dates: start: 20210831, end: 202202

REACTIONS (6)
  - Gastric ulcer [Not Recovered/Not Resolved]
  - Paralysis [Not Recovered/Not Resolved]
  - Gastritis [Unknown]
  - Muscular weakness [Unknown]
  - Feeding disorder [Unknown]
  - Vomiting [Not Recovered/Not Resolved]

NARRATIVE: CASE EVENT DATE: 20220201
